FAERS Safety Report 7478438-8 (Version None)
Quarter: 2011Q2

REPORT INFORMATION
  Report Type: 
  Country: None (occurrence: None)
  Receive Date: 20110513
  Receipt Date: 20100621
  Transmission Date: 20111010
  Serious: Yes (Other)
  Sender: FDA-Public Use
  Company Number: US-PFIZER INC-2010077818

PATIENT
  Age: 3 Year

DRUGS (1)
  1. SULFASALAZINE [Suspect]

REACTIONS (1)
  - HYPERSENSITIVITY [None]
